FAERS Safety Report 22258619 (Version 1)
Quarter: 2023Q2

REPORT INFORMATION
  Report Type: Spontaneous
  Country: JP (occurrence: JP)
  Receive Date: 20230427
  Receipt Date: 20230427
  Transmission Date: 20230722
  Serious: Yes (Life-Threatening, Hospitalization, Other)
  Sender: FDA-Public Use
  Company Number: JP-MLMSERVICE-20230411-4219388-1

PATIENT
  Age: 50 Year
  Sex: Male
  Weight: 53.4 kg

DRUGS (14)
  1. CISPLATIN [Suspect]
     Active Substance: CISPLATIN
     Indication: Lung carcinoma cell type unspecified stage IV
     Dates: start: 202101
  2. ETOPOSIDE [Suspect]
     Active Substance: ETOPOSIDE
     Indication: Metastases to central nervous system
     Dates: start: 202101
  3. DURVALUMAB [Suspect]
     Active Substance: DURVALUMAB
     Indication: Lung carcinoma cell type unspecified stage IV
     Dosage: 1500 MG/BODY
     Dates: start: 202101
  4. BISOPROLOL [Concomitant]
     Active Substance: BISOPROLOL
     Route: 048
  5. ESOMEPRAZOLE [Concomitant]
     Active Substance: ESOMEPRAZOLE
     Route: 048
  6. ETOPOSIDE [Suspect]
     Active Substance: ETOPOSIDE
     Indication: Small cell lung cancer
     Dates: start: 202101
  7. ETOPOSIDE [Suspect]
     Active Substance: ETOPOSIDE
     Indication: Metastases to pleura
     Dates: start: 202101
  8. ETOPOSIDE [Suspect]
     Active Substance: ETOPOSIDE
     Indication: Lung carcinoma cell type unspecified stage IV
     Dates: start: 202101
  9. CISPLATIN [Suspect]
     Active Substance: CISPLATIN
     Indication: Metastases to central nervous system
     Dates: start: 202101
  10. CISPLATIN [Suspect]
     Active Substance: CISPLATIN
     Indication: Small cell lung cancer
     Dates: start: 202101
  11. DURVALUMAB [Suspect]
     Active Substance: DURVALUMAB
     Indication: Small cell lung cancer
     Dosage: 1500 MG/BODY
     Dates: start: 202101
  12. DURVALUMAB [Suspect]
     Active Substance: DURVALUMAB
     Indication: Metastases to central nervous system
     Dosage: 1500 MG/BODY
     Dates: start: 202101
  13. DURVALUMAB [Suspect]
     Active Substance: DURVALUMAB
     Indication: Metastases to pleura
     Dosage: 1500 MG/BODY
     Dates: start: 202101
  14. CISPLATIN [Suspect]
     Active Substance: CISPLATIN
     Indication: Metastases to pleura
     Dates: start: 202101

REACTIONS (4)
  - Thrombocytopenia [Recovering/Resolving]
  - Febrile neutropenia [Recovering/Resolving]
  - Interstitial lung disease [Recovered/Resolved]
  - COVID-19 pneumonia [Recovering/Resolving]
